FAERS Safety Report 11127619 (Version 1)
Quarter: 2015Q2

REPORT INFORMATION
  Report Type: Spontaneous
  Country: FR (occurrence: FR)
  Receive Date: 20150521
  Receipt Date: 20150521
  Transmission Date: 20150821
  Serious: Yes (Death, Hospitalization)
  Sender: FDA-Public Use
  Company Number: FR-TEVA-562661ISR

PATIENT
  Age: 67 Year
  Sex: Male

DRUGS (13)
  1. INEXIUM [Concomitant]
     Active Substance: ESOMEPRAZOLE
     Dosage: USUAL TREATMENT
     Route: 048
  2. SUFENTA [Concomitant]
     Active Substance: SUFENTANIL CITRATE
     Dosage: USUAL TREATMENT
     Dates: start: 20150321
  3. ARACYTINE [Concomitant]
     Active Substance: CYTARABINE
     Indication: CENTRAL NERVOUS SYSTEM LYMPHOMA
     Dosage: 4 GRAM DAILY;
     Dates: start: 20150323, end: 20150323
  4. PANTOPRAZOLE [Concomitant]
     Active Substance: PANTOPRAZOLE SODIUM
     Dosage: USUAL TREATMENT
  5. MIDAZOLAM [Concomitant]
     Active Substance: MIDAZOLAM\MIDAZOLAM HYDROCHLORIDE
     Dosage: USUAL TREATMENT
     Dates: start: 20150321
  6. KARDEGIC [Concomitant]
     Active Substance: ASPIRIN LYSINE
     Dosage: USUAL TREATMENT
     Dates: end: 201503
  7. LOVENOX [Concomitant]
     Active Substance: ENOXAPARIN SODIUM
     Dosage: USUAL TREATMENT
  8. SOLU-MEDROL [Concomitant]
     Active Substance: METHYLPREDNISOLONE SODIUM SUCCINATE
     Dosage: USUAL TREATMENT
  9. KEPPRA [Concomitant]
     Active Substance: LEVETIRACETAM
     Dosage: USUAL TREATMENT
  10. NOREPINEPHRINE [Concomitant]
     Active Substance: NOREPINEPHRINE\NOREPINEPHRINE BITARTRATE
     Dosage: USUAL TREATMENT
     Dates: start: 20150321
  11. METHOTREXATE (METHOTREXATE SODIUM) [Suspect]
     Active Substance: METHOTREXATE SODIUM
     Dosage: 6 GRAM DAILY;
     Route: 042
     Dates: start: 20150322, end: 20150322
  12. CARDENSIEL [Concomitant]
     Active Substance: BISOPROLOL FUMARATE
     Dosage: USUAL TREATMENT
     Dates: end: 201503
  13. CRESTOR [Concomitant]
     Active Substance: ROSUVASTATIN CALCIUM
     Dosage: USUAL TREATMENT
     Dates: end: 201503

REACTIONS (5)
  - Bone marrow failure [Fatal]
  - Overdose [Unknown]
  - Septic shock [Fatal]
  - Renal failure [Unknown]
  - Hepatocellular injury [Unknown]

NARRATIVE: CASE EVENT DATE: 20150323
